FAERS Safety Report 15561436 (Version 1)
Quarter: 2018Q4

REPORT INFORMATION
  Report Type: Spontaneous
  Country: US (occurrence: US)
  Receive Date: 20181029
  Receipt Date: 20181029
  Transmission Date: 20190205
  Serious: No
  Sender: FDA-Public Use
  Company Number: US-GLAXOSMITHKLINE-US2018191885

PATIENT
  Age: 12 Year
  Sex: Male

DRUGS (1)
  1. PREVACID 24 HR [Suspect]
     Active Substance: LANSOPRAZOLE
     Indication: GASTROOESOPHAGEAL REFLUX DISEASE
     Dosage: UNK
     Route: 048

REACTIONS (5)
  - Recalled product [Unknown]
  - Product use in unapproved indication [Unknown]
  - Intercepted product administration error [Unknown]
  - Product use issue [Unknown]
  - Incorrect product administration duration [Unknown]
